FAERS Safety Report 15369820 (Version 1)
Quarter: 2018Q3

REPORT INFORMATION
  Report Type: Spontaneous
  Country: US (occurrence: US)
  Receive Date: 20180904
  Receipt Date: 20180904
  Transmission Date: 20181010
  Serious: No
  Sender: FDA-Public Use
  Company Number: None

PATIENT
  Age: 30 Year
  Sex: Female

DRUGS (1)
  1. METHOTREXATE 50MG/2ML MDV [Suspect]
     Active Substance: METHOTREXATE SODIUM
     Indication: RHEUMATOID ARTHRITIS
     Dosage: INJECT 0.6 CC (ML) SUBCUTANEOUSLY ONCE A WEEK FOR 2 WEEKS THEN  INCREASED TO 0.8 CC(ML) ONCE A WEEK
     Route: 058
     Dates: start: 201806

REACTIONS (3)
  - Fatigue [None]
  - Nausea [None]
  - Fungal infection [None]
